FAERS Safety Report 8714675 (Version 2)
Quarter: 2012Q4

REPORT INFORMATION
  Report Type: 
  Country: CA (occurrence: CA)
  Receive Date: 20120809
  Receipt Date: 20121018
  Transmission Date: 20130627
  Serious: Yes (Death, Other)
  Sender: FDA-Public Use
  Company Number: PHHY2012CA068458

PATIENT
  Sex: Male

DRUGS (3)
  1. CLOZARIL [Suspect]
     Dosage: UNK UKN, UNK
     Dates: start: 19920713
  2. ARIPIPRAZOLE [Concomitant]
     Dosage: UNK UKN, UNK
  3. ARIPIPRAZOLE [Concomitant]
     Dosage: UNK UKN, UNK

REACTIONS (2)
  - Myocardial infarction [Fatal]
  - Pulmonary fibrosis [Unknown]
